FAERS Safety Report 10173685 (Version 2)
Quarter: 2014Q2

REPORT INFORMATION
  Report Type: Spontaneous
  Country: DK (occurrence: FR)
  Receive Date: 20140515
  Receipt Date: 20140528
  Transmission Date: 20141212
  Serious: Yes (Life-Threatening, Hospitalization)
  Sender: FDA-Public Use
  Company Number: FR-FRI-1000067322

PATIENT
  Age: 44 Year
  Sex: Male

DRUGS (4)
  1. ESCITALOPRAM [Suspect]
     Indication: DEPRESSION
     Dosage: 20 MG
     Route: 048
  2. XEROQUEL [Suspect]
     Route: 048
  3. XEROQUEL [Suspect]
     Dosage: OVERDOSE OF 1 BOX (UNKNOWN EXACT DOSE)
     Route: 048
     Dates: start: 20140225
  4. LOXAPAC [Suspect]
     Route: 048

REACTIONS (4)
  - Neuroleptic malignant syndrome [Recovered/Resolved]
  - Renal tubular necrosis [Recovered/Resolved]
  - Suicide attempt [Recovered/Resolved]
  - Intentional overdose [Recovered/Resolved]
